FAERS Safety Report 9259551 (Version 2)
Quarter: 2013Q2

REPORT INFORMATION
  Report Type: Spontaneous
  Country: US (occurrence: US)
  Receive Date: 20130429
  Receipt Date: 20130606
  Transmission Date: 20140414
  Serious: Yes (Hospitalization, Other)
  Sender: FDA-Public Use
  Company Number: US-AMGEN-USASP2013029148

PATIENT
  Age: 76 Year
  Sex: Female
  Weight: 99.77 kg

DRUGS (1)
  1. PROCRIT [Suspect]
     Indication: HAEMOGLOBIN DECREASED
     Dosage: 40000 UNIT, WHEN NEEDED

REACTIONS (5)
  - Haemoglobin decreased [Not Recovered/Not Resolved]
  - Walking aid user [Not Recovered/Not Resolved]
  - Wheelchair user [Not Recovered/Not Resolved]
  - Deafness [Not Recovered/Not Resolved]
  - Adverse event [Not Recovered/Not Resolved]
